FAERS Safety Report 11248527 (Version 1)
Quarter: 2015Q3

REPORT INFORMATION
  Report Type: Spontaneous
  Country: US (occurrence: US)
  Receive Date: 20150708
  Receipt Date: 20150708
  Transmission Date: 20151125
  Serious: No
  Sender: FDA-Public Use
  Company Number: US-ELI_LILLY_AND_COMPANY-US200912004159

PATIENT
  Age: 51 Year
  Sex: Female

DRUGS (1)
  1. PROZAC [Suspect]
     Active Substance: FLUOXETINE HYDROCHLORIDE
     Indication: MAJOR DEPRESSION
     Dosage: UNK, UNKNOWN
     Route: 065

REACTIONS (9)
  - Vision blurred [Unknown]
  - Drug ineffective [Unknown]
  - Weight increased [Unknown]
  - Indifference [Unknown]
  - Fatigue [Unknown]
  - Sleep disorder [Unknown]
  - Sedation [Unknown]
  - Dry mouth [Unknown]
  - Somnolence [Unknown]
